FAERS Safety Report 7009576-1 (Version None)
Quarter: 2010Q3

REPORT INFORMATION
  Report Type: 
  Country: None (occurrence: None)
  Receive Date: 20100923
  Receipt Date: 20100913
  Transmission Date: 20110219
  Serious: Yes (Hospitalization)
  Sender: FDA-Public Use
  Company Number: US-US-EMD SERONO, INC.-7017519

PATIENT
  Sex: Female

DRUGS (2)
  1. REBIF [Suspect]
     Indication: PRODUCT USED FOR UNKNOWN INDICATION
     Dates: start: 20041122, end: 20090901
  2. REBIF [Suspect]
     Route: 058
     Dates: start: 20100216

REACTIONS (6)
  - CHILLS [None]
  - FALL [None]
  - INJECTION SITE MASS [None]
  - INJECTION SITE PAIN [None]
  - MYALGIA [None]
  - SUBDURAL HAEMATOMA [None]
